FAERS Safety Report 26036947 (Version 1)
Quarter: 2025Q4

REPORT INFORMATION
  Report Type: Report from Study
  Country: US (occurrence: US)
  Receive Date: 20251112
  Receipt Date: 20251112
  Transmission Date: 20260118
  Serious: Yes (Hospitalization, Other)
  Sender: ABBVIE
  Company Number: US-ABBVIE-6536529

PATIENT
  Age: 65 Year
  Sex: Female

DRUGS (1)
  1. RINVOQ [Suspect]
     Active Substance: UPADACITINIB
     Indication: Rheumatoid arthritis
     Dosage: LAST ADMIN: 2025
     Route: 048
     Dates: start: 20250626

REACTIONS (5)
  - Perforation bile duct [Recovering/Resolving]
  - Post procedural sepsis [Recovering/Resolving]
  - Coma [Recovered/Resolved]
  - Arthralgia [Not Recovered/Not Resolved]
  - Volvulus [Recovering/Resolving]

NARRATIVE: CASE EVENT DATE: 20250101
